FAERS Safety Report 5144044-3 (Version None)
Quarter: 2006Q4

REPORT INFORMATION
  Report Type: 
  Country: None (occurrence: None)
  Receive Date: 20061106
  Receipt Date: 20060608
  Transmission Date: 20070319
  Serious: No
  Sender: FDA-Public Use
  Company Number: US-GLAXOSMITHKLINE-A0608373A

PATIENT
  Age: 94 Year
  Sex: Female

DRUGS (5)
  1. AMOXICILLIN [Suspect]
     Dosage: 875MG TWICE PER DAY
     Route: 048
     Dates: start: 20060603
  2. DIGITEK [Concomitant]
  3. PREDNISONE TAB [Concomitant]
  4. MAXZIDE [Concomitant]
  5. ATENOLOL [Concomitant]

REACTIONS (2)
  - DRUG INEFFECTIVE [None]
  - EPISTAXIS [None]
